FAERS Safety Report 20491642 (Version 1)
Quarter: 2022Q1

REPORT INFORMATION
  Report Type: Spontaneous
  Country: US (occurrence: None)
  Receive Date: 20220218
  Receipt Date: 20220218
  Transmission Date: 20220424
  Serious: Yes (Other)
  Sender: FDA-Public Use
  Company Number: US-ROCHE-3029023

PATIENT
  Sex: Female
  Weight: 71.732 kg

DRUGS (1)
  1. ACTEMRA [Suspect]
     Active Substance: TOCILIZUMAB
     Indication: Giant cell arteritis
     Dosage: UNKNOWN
     Route: 065
     Dates: start: 202108

REACTIONS (3)
  - Visual impairment [Unknown]
  - Osteonecrosis [Unknown]
  - Skin ulcer [Unknown]
